FAERS Safety Report 13718482 (Version 1)
Quarter: 2017Q3

REPORT INFORMATION
  Report Type: Spontaneous
  Country: FR (occurrence: FR)
  Receive Date: 20170705
  Receipt Date: 20170705
  Transmission Date: 20171127
  Serious: Yes (Hospitalization)
  Sender: FDA-Public Use
  Company Number: FR-TELIGENT, INC-IGIL20170284

PATIENT
  Age: 96 Year
  Sex: Male

DRUGS (6)
  1. CEFTAZIDIME. [Suspect]
     Active Substance: CEFTAZIDIME
     Dosage: 6 G
     Route: 042
     Dates: start: 20170609
  2. SERETIDE [Concomitant]
     Active Substance: FLUTICASONE PROPIONATE\SALMETEROL XINAFOATE
     Indication: PRODUCT USED FOR UNKNOWN INDICATION
     Dosage: UNKNOWN
     Route: 065
  3. CEFTAZIDIME. [Suspect]
     Active Substance: CEFTAZIDIME
     Indication: BRONCHIAL OBSTRUCTION
     Dosage: UNKNOWN
     Route: 042
     Dates: start: 20170606, end: 20170609
  4. CEFTAZIDIME. [Suspect]
     Active Substance: CEFTAZIDIME
     Dosage: 4 G
     Route: 042
     Dates: start: 20170613, end: 20170614
  5. CEFTAZIDIME. [Suspect]
     Active Substance: CEFTAZIDIME
     Dosage: 4 G
     Route: 042
     Dates: start: 20170611, end: 20170612
  6. TILDIEM [Concomitant]
     Active Substance: DILTIAZEM HYDROCHLORIDE
     Indication: PRODUCT USED FOR UNKNOWN INDICATION
     Dosage: UNKNOWN
     Route: 065

REACTIONS (2)
  - Confusional state [Recovered/Resolved]
  - Somnolence [Recovered/Resolved]

NARRATIVE: CASE EVENT DATE: 20170611
